FAERS Safety Report 10162436 (Version 1)
Quarter: 2014Q2

REPORT INFORMATION
  Report Type: Spontaneous
  Country: DE (occurrence: None)
  Receive Date: 20140507
  Receipt Date: 20140507
  Transmission Date: 20141212
  Serious: Yes (Hospitalization)
  Sender: FDA-Public Use
  Company Number: AUR-APL-2014-05256

PATIENT
  Age: 43 Year
  Sex: Female
  Weight: 95 kg

DRUGS (2)
  1. METFORMIN (METFORMIN) [Suspect]
     Indication: TYPE 2 DIABETES MELLITUS
     Route: 048
     Dates: start: 20140316
  2. VICTOZA (LIRAGLUTIDE) [Suspect]
     Indication: TYPE 2 DIABETES MELLITUS
     Dosage: INCREASED WITHIN 2 WEEKS UP TO 12 MG/ML
     Dates: start: 201403

REACTIONS (7)
  - Lactic acidosis [None]
  - Nausea [None]
  - Renal failure acute [None]
  - Vomiting [None]
  - Decreased appetite [None]
  - Apparent life threatening event [None]
  - Gastrointestinal pain [None]
